FAERS Safety Report 20841697 (Version 2)
Quarter: 2022Q2

REPORT INFORMATION
  Report Type: Report from Study
  Country: NL (occurrence: NL)
  Receive Date: 20220518
  Receipt Date: 20220616
  Transmission Date: 20220721
  Serious: Yes (Hospitalization)
  Sender: FDA-Public Use
  Company Number: NL-BIOGEN-2022BI01111621

PATIENT
  Sex: Female

DRUGS (2)
  1. TECFIDERA [Suspect]
     Active Substance: DIMETHYL FUMARATE
     Indication: Multiple sclerosis
     Dosage: STARTING DOSE
     Route: 048
     Dates: start: 20210430, end: 20210618
  2. TECFIDERA [Suspect]
     Active Substance: DIMETHYL FUMARATE
     Dosage: MAINTENANCE DOSE
     Route: 048
     Dates: start: 20210618

REACTIONS (6)
  - Pain [Recovered/Resolved]
  - White blood cell count increased [Recovered/Resolved]
  - Liver function test increased [Recovered/Resolved with Sequelae]
  - Flatulence [Not Recovered/Not Resolved]
  - COVID-19 [Recovered/Resolved]
  - Abdominal pain [Not Recovered/Not Resolved]

NARRATIVE: CASE EVENT DATE: 20220228
